FAERS Safety Report 13461042 (Version 1)
Quarter: 2017Q2

REPORT INFORMATION
  Report Type: Spontaneous
  Country: US (occurrence: US)
  Receive Date: 20170419
  Receipt Date: 20170419
  Transmission Date: 20170830
  Serious: Yes (Death)
  Sender: FDA-Public Use
  Company Number: None

PATIENT
  Age: 77 Year
  Sex: Female

DRUGS (3)
  1. FORTEO [Suspect]
     Active Substance: TERIPARATIDE
     Indication: ARTHRALGIA
     Route: 058
     Dates: start: 20151013
  2. FORTEO [Suspect]
     Active Substance: TERIPARATIDE
     Indication: OSTEOPOROSIS
     Route: 058
     Dates: start: 20151013
  3. FORTEO [Suspect]
     Active Substance: TERIPARATIDE
     Indication: RADIUS FRACTURE
     Route: 058
     Dates: start: 20151013

REACTIONS (1)
  - Death [None]

NARRATIVE: CASE EVENT DATE: 20170418
